FAERS Safety Report 6966680-1 (Version None)
Quarter: 2010Q3

REPORT INFORMATION
  Report Type: 
  Country: None (occurrence: None)
  Receive Date: 20100906
  Receipt Date: 20100827
  Transmission Date: 20110219
  Serious: No
  Sender: FDA-Public Use
  Company Number: US-BIOGENIDEC-2010BI029783

PATIENT
  Age: 48 Year
  Sex: Female

DRUGS (5)
  1. AVONEX [Suspect]
     Indication: MULTIPLE SCLEROSIS
     Route: 030
     Dates: start: 20100730, end: 20100730
  2. AVONEX [Suspect]
     Route: 030
     Dates: start: 20100806, end: 20100806
  3. AVONEX [Suspect]
     Route: 030
     Dates: start: 20100813, end: 20100813
  4. AVONEX [Suspect]
     Route: 030
     Dates: start: 20100820, end: 20100820
  5. AVONEX [Suspect]
     Route: 030
     Dates: start: 20100827

REACTIONS (7)
  - ABDOMINAL PAIN UPPER [None]
  - FEAR [None]
  - INFLUENZA LIKE ILLNESS [None]
  - MIGRAINE [None]
  - MUSCULAR WEAKNESS [None]
  - PAIN [None]
  - PALPITATIONS [None]
